FAERS Safety Report 8523350-6 (Version None)
Quarter: 2012Q3

REPORT INFORMATION
  Report Type: 
  Country: None (occurrence: None)
  Receive Date: 20120720
  Receipt Date: 20101129
  Transmission Date: 20120928
  Serious: Yes (Hospitalization, Other)
  Sender: FDA-Public Use
  Company Number: US-BAYER-201016002NA

PATIENT
  Age: 40 Year
  Sex: Female
  Weight: 68 kg

DRUGS (11)
  1. NASONEX [Concomitant]
  2. IBUPROFEN [Concomitant]
     Dosage: OCCASIOALLLY
     Dates: end: 20070227
  3. SIMVASTATIN [Concomitant]
     Indication: BLOOD CHOLESTEROL INCREASED
     Dosage: 1 PILL PER NIGHT
     Route: 048
  4. CITALOPRAM HYDROBROMIDE [Concomitant]
     Indication: PROPHYLAXIS
  5. RISPERIDONE [Concomitant]
     Indication: PROPHYLAXIS
     Dosage: 1 PILL PER NIGHT
  6. YASMIN [Suspect]
     Indication: ORAL CONTRACEPTION
     Route: 048
     Dates: start: 20060101, end: 20070201
  7. ALBUTEROL [Concomitant]
  8. YAZ [Suspect]
     Indication: ORAL CONTRACEPTION
     Route: 048
     Dates: start: 20060101, end: 20070201
  9. OMEPRAZOLE [Concomitant]
  10. ABILIFY [Concomitant]
     Dosage: 2 MG, UNK
     Route: 048
     Dates: start: 20070102
  11. LEXAPRO [Concomitant]
     Dosage: 10 MG, UNK
     Route: 048
     Dates: start: 20070102

REACTIONS (3)
  - PULMONARY INFARCTION [None]
  - PULMONARY EMBOLISM [None]
  - THROMBOSIS [None]
